FAERS Safety Report 9970277 (Version 4)
Quarter: 2014Q2

REPORT INFORMATION
  Report Type: Spontaneous
  Country: GB (occurrence: None)
  Receive Date: 20140304
  Receipt Date: 20140421
  Transmission Date: 20141212
  Serious: Yes (Death, Other)
  Sender: FDA-Public Use
  Company Number: ADR-2014-00322

PATIENT
  Sex: Male

DRUGS (1)
  1. COMPOUNDED BACLOFEN [Suspect]

REACTIONS (4)
  - Pulmonary embolism [None]
  - No therapeutic response [None]
  - Muscle spasticity [None]
  - Device occlusion [None]
